FAERS Safety Report 5142444-9 (Version None)
Quarter: 2006Q4

REPORT INFORMATION
  Report Type: 
  Country: None (occurrence: None)
  Receive Date: 20061027
  Receipt Date: 20061023
  Transmission Date: 20070319
  Serious: Yes (Death)
  Sender: FDA-Public Use
  Company Number: 163-20785-06070903

PATIENT
  Age: 58 Year
  Sex: Male

DRUGS (12)
  1. REVLIMID [Suspect]
     Indication: MULTIPLE MYELOMA
     Dosage: 25 MG, 1 IN 1 D, ORAL
     Route: 048
     Dates: start: 20060803, end: 20060901
  2. THALOMID [Suspect]
     Indication: MULTIPLE MYELOMA
     Dosage: 100 MG, 2 IN 1 D, ORAL
     Route: 048
     Dates: start: 20060710, end: 20060714
  3. THALOMID [Suspect]
     Indication: MULTIPLE MYELOMA
     Dosage: 100 MG, 2 IN 1 D, ORAL
     Route: 048
     Dates: end: 20060725
  4. TERAZOSIN HCL [Concomitant]
  5. DIOVAN HCT (CO-DIOVAN) [Concomitant]
  6. OXYCODE-APAP (OXYCODONE/APAP) [Concomitant]
  7. FENTANYL [Concomitant]
  8. LIDODERM [Concomitant]
  9. HYDROMORPHONE HCL [Concomitant]
  10. SKELAXIN [Concomitant]
  11. ASPIRIN [Concomitant]
  12. DECADRON [Concomitant]

REACTIONS (5)
  - DRUG INTOLERANCE [None]
  - MALIGNANT NEOPLASM PROGRESSION [None]
  - MULTIPLE MYELOMA [None]
  - RASH [None]
  - RENAL FAILURE [None]
